FAERS Safety Report 14578314 (Version 1)
Quarter: 2018Q1

REPORT INFORMATION
  Report Type: Spontaneous
  Country: PT (occurrence: PT)
  Receive Date: 20180227
  Receipt Date: 20180227
  Transmission Date: 20180509
  Serious: Yes (Other)
  Sender: FDA-Public Use
  Company Number: PT-SA-2018SA041445

PATIENT
  Age: 47 Year
  Sex: Female

DRUGS (2)
  1. CEFOTAXIME SODIUM [Suspect]
     Active Substance: CEFOTAXIME SODIUM
     Route: 065
  2. CEFTRIAXONE SODIUM. [Suspect]
     Active Substance: CEFTRIAXONE SODIUM
     Route: 065

REACTIONS (5)
  - Therapeutic product cross-reactivity [Recovering/Resolving]
  - Eczema [Recovering/Resolving]
  - Skin lesion [Recovering/Resolving]
  - Occupational exposure to product [Unknown]
  - Dermatitis contact [Recovering/Resolving]
